FAERS Safety Report 25449512 (Version 1)
Quarter: 2025Q2

REPORT INFORMATION
  Report Type: Spontaneous
  Country: ES (occurrence: ES)
  Receive Date: 20250618
  Receipt Date: 20250618
  Transmission Date: 20250717
  Serious: Yes (Other)
  Sender: JOHNSON AND JOHNSON
  Company Number: None

PATIENT
  Age: 18 Year
  Sex: Female
  Weight: 57 kg

DRUGS (5)
  1. TOPAMAX [Suspect]
     Active Substance: TOPIRAMATE
     Indication: Migraine
     Route: 048
     Dates: start: 20250428, end: 20250611
  2. Tryptizol 10 mg film-coated tablets, 24 tablets [Concomitant]
     Indication: Migraine
     Route: 048
     Dates: start: 20250407
  3. ANTALGIN 550 mg FILM-COATED TABLETS, 40 tablets [Concomitant]
     Indication: Migraine
     Route: 048
     Dates: start: 20250428
  4. ENANTYUM 25 mg FILM-COATED TABLETS, 20 tablets (PVC/Al) [Concomitant]
     Indication: Migraine
     Route: 048
     Dates: start: 20250407
  5. MAXALT 10 mg TABLETS, 6 tablets [Concomitant]
     Indication: Migraine
     Route: 048
     Dates: start: 20250428

REACTIONS (2)
  - Tic [Recovered/Resolved]
  - Paraesthesia [Recovered/Resolved]

NARRATIVE: CASE EVENT DATE: 20250601
